FAERS Safety Report 10670537 (Version 4)
Quarter: 2015Q1

REPORT INFORMATION
  Report Type: Report from Study
  Country: CA (occurrence: CA)
  Receive Date: 20141223
  Receipt Date: 20150223
  Transmission Date: 20150720
  Serious: Yes (Death, Hospitalization, Other)
  Sender: FDA-Public Use
  Company Number: PHHY2014CA010844

PATIENT
  Age: 79 Year
  Sex: Female
  Weight: 69 kg

DRUGS (2)
  1. SANDOSTATIN LAR DEPOT [Suspect]
     Active Substance: OCTREOTIDE ACETATE
     Indication: CARCINOID TUMOUR
     Dosage: 40 MG, EVERY 4 WEEKS
     Route: 030
     Dates: start: 20121123
  2. SANDOSTATIN LAR DEPOT [Suspect]
     Active Substance: OCTREOTIDE ACETATE
     Dosage: 60 MG, EVERY 4 WEEKS
     Route: 030
     Dates: end: 20150203

REACTIONS (22)
  - Second primary malignancy [Unknown]
  - Metastases to liver [Unknown]
  - Hepatic pain [Recovering/Resolving]
  - Vomiting [Unknown]
  - Rhinorrhoea [Not Recovered/Not Resolved]
  - Decreased appetite [Unknown]
  - Headache [Unknown]
  - Nausea [Unknown]
  - Death [Fatal]
  - Metastases to lung [Unknown]
  - Glaucoma [Unknown]
  - Asthenia [Unknown]
  - Weight decreased [Unknown]
  - Abdominal pain upper [Unknown]
  - Mediastinal mass [Unknown]
  - Pericardial disease [Unknown]
  - Nasopharyngitis [Recovering/Resolving]
  - Cough [Unknown]
  - Malaise [Unknown]
  - Soft tissue neoplasm [Unknown]
  - Blood pressure systolic increased [Unknown]
  - Abdominal pain [Unknown]

NARRATIVE: CASE EVENT DATE: 2014
